FAERS Safety Report 9775732 (Version 1)
Quarter: 2013Q4

REPORT INFORMATION
  Report Type: Other
  Country: CN (occurrence: CN)
  Receive Date: 20131220
  Receipt Date: 20131220
  Transmission Date: 20140711
  Serious: Yes (Other)
  Sender: FDA-Public Use
  Company Number: CN-BRISTOL-MYERS SQUIBB COMPANY-19924216

PATIENT
  Sex: 0

DRUGS (1)
  1. MITOMYCIN-C [Suspect]
     Indication: BLADDER CANCER
     Dosage: SPECIFICATION: 10 MG PER AMPULE. INJECTION
     Route: 043

REACTIONS (2)
  - Hepatic function abnormal [Unknown]
  - Renal impairment [Unknown]
